FAERS Safety Report 7236129-2 (Version None)
Quarter: 2011Q1

REPORT INFORMATION
  Report Type: 
  Country: None (occurrence: None)
  Receive Date: 20110111
  Receipt Date: 20101230
  Transmission Date: 20110831
  Serious: Yes (Hospitalization)
  Sender: FDA-Public Use
  Company Number: 788942

PATIENT

DRUGS (1)
  1. MORPHINE SULFATE 2MG/ML (MORPHINE SULPHATE) [Suspect]
     Indication: PRODUCT USED FOR UNKNOWN INDICATION
     Dates: start: 20101230

REACTIONS (2)
  - ERYTHEMA [None]
  - CHEST PAIN [None]
